FAERS Safety Report 8589171 (Version 2)
Quarter: 2013Q1

REPORT INFORMATION
  Report Type: Spontaneous
  Country: BR (occurrence: BR)
  Receive Date: 20120531
  Receipt Date: 20130204
  Transmission Date: 20140127
  Serious: Yes (Hospitalization, Other)
  Sender: FDA-Public Use
  Company Number: BR-PFIZER INC-2012127904

PATIENT
  Age: 73 Year
  Sex: Female
  Weight: 82 kg

DRUGS (11)
  1. LYRICA [Suspect]
     Indication: BACK PAIN
     Dosage: 75 MG (ONE CAPSULE), 1X/DAY
     Route: 048
     Dates: start: 20100225, end: 201012
  2. LYRICA [Suspect]
     Dosage: UNK
  3. EUTHYROX [Concomitant]
     Indication: THYROID DISORDER
     Dosage: ONE TABLET DAILY
     Dates: start: 2002
  4. GLIFAGE [Concomitant]
     Indication: DIABETES MELLITUS
     Dosage: 1 G, 2X/DAY
     Dates: start: 2002
  5. INSULIN [Concomitant]
     Indication: DIABETES MELLITUS
     Dosage: UNK
     Dates: start: 2002
  6. LISADOR [Concomitant]
     Indication: BACK PAIN
     Dosage: 35 DROPS, SOMETIMES
     Dates: start: 201011
  7. LISADOR [Concomitant]
     Indication: PAIN IN EXTREMITY
  8. LISADOR [Concomitant]
     Indication: PAIN IN EXTREMITY
  9. PROPRANOLOL HYDROCHLORIDE [Concomitant]
     Indication: BLOOD PRESSURE INCREASED
     Dosage: UNK
     Dates: start: 2004
  10. RIVOTRIL [Concomitant]
     Indication: RELAXATION THERAPY
     Dosage: ONE TABLET DAILY
     Dates: start: 1992
  11. PARIET [Concomitant]
     Indication: ABDOMINAL DISCOMFORT

REACTIONS (7)
  - Spinal cord disorder [Unknown]
  - Hypertension [Unknown]
  - Pain in extremity [Unknown]
  - Nausea [Unknown]
  - Eating disorder [Unknown]
  - Weight decreased [Not Recovered/Not Resolved]
  - Malaise [Unknown]
